FAERS Safety Report 5930381-9 (Version None)
Quarter: 2008Q4

REPORT INFORMATION
  Report Type: 
  Country: None (occurrence: None)
  Receive Date: 20081023
  Receipt Date: 20060727
  Transmission Date: 20090506
  Serious: Yes (Other)
  Sender: FDA-Public Use
  Company Number: 2006AL002245

PATIENT
  Age: 24 Year
  Sex: Female

DRUGS (1)
  1. NIFEDIPINE [Suspect]
     Indication: TOCOLYSIS
     Dosage: TRPL

REACTIONS (10)
  - DRUG EXPOSURE DURING PREGNANCY [None]
  - FLUSHING [None]
  - HEADACHE [None]
  - HYPOTENSION [None]
  - INTRA-UTERINE DEATH [None]
  - NAUSEA [None]
  - OFF LABEL USE [None]
  - PALPITATIONS [None]
  - VISUAL IMPAIRMENT [None]
  - VOMITING [None]
